FAERS Safety Report 9342822 (Version 1)
Quarter: 2013Q2

REPORT INFORMATION
  Report Type: Spontaneous
  Country: US (occurrence: None)
  Receive Date: 20130607
  Receipt Date: 20130607
  Transmission Date: 20140414
  Serious: Yes (Other)
  Sender: FDA-Public Use
  Company Number: 1737996

PATIENT
  Age: 71 Year
  Sex: Female

DRUGS (1)
  1. EPINEPHRINE [Suspect]
     Indication: COUGH
     Dosage: INTRAVENOUS (NOT OTHERWISE SPECIFIED)
     Route: 042

REACTIONS (5)
  - Air embolism [None]
  - Electrocardiogram ST segment elevation [None]
  - Ischaemic stroke [None]
  - Subarachnoid haemorrhage [None]
  - Stress cardiomyopathy [None]
